FAERS Safety Report 13617925 (Version 2)
Quarter: 2017Q2

REPORT INFORMATION
  Report Type: Spontaneous
  Country: BR (occurrence: BR)
  Receive Date: 20170606
  Receipt Date: 20170614
  Transmission Date: 20170830
  Serious: No
  Sender: FDA-Public Use
  Company Number: BR-SA-2017SA098305

PATIENT
  Age: 35 Year
  Sex: Female
  Weight: 53 kg

DRUGS (1)
  1. ALLEGRA-D [Suspect]
     Active Substance: FEXOFENADINE\PSEUDOEPHEDRINE
     Indication: RHINITIS
     Route: 048
     Dates: start: 20170525, end: 20170526

REACTIONS (6)
  - Fatigue [Not Recovered/Not Resolved]
  - Tachycardia [Not Recovered/Not Resolved]
  - Electrocardiogram change [Unknown]
  - Abdominal pain [Not Recovered/Not Resolved]
  - Erythema [Unknown]
  - Erythema [Not Recovered/Not Resolved]

NARRATIVE: CASE EVENT DATE: 20170526
